FAERS Safety Report 5100730-2 (Version None)
Quarter: 2006Q3

REPORT INFORMATION
  Report Type: 
  Country: None (occurrence: None)
  Receive Date: 20060906
  Receipt Date: 20060824
  Transmission Date: 20061208
  Serious: Yes (Hospitalization)
  Sender: FDA-Public Use
  Company Number: 2006040881

PATIENT
  Age: 64 Year
  Sex: Male
  Weight: 105 kg

DRUGS (4)
  1. SUTENT [Suspect]
     Indication: METASTATIC RENAL CELL CARCINOMA
     Dosage: 50 MG (50 MG, 1 IN 1 D), ORAL
     Route: 048
     Dates: start: 20060310, end: 20060320
  2. DECADRON [Concomitant]
  3. RANITIDINE [Concomitant]
  4. ACETAMINOPHEN [Concomitant]

REACTIONS (3)
  - CONFUSIONAL STATE [None]
  - JAUNDICE [None]
  - PULMONARY EMBOLISM [None]
